FAERS Safety Report 6242135-7 (Version None)
Quarter: 2009Q2

REPORT INFORMATION
  Report Type: 
  Country: None (occurrence: None)
  Receive Date: 20090622
  Receipt Date: 20090622
  Transmission Date: 20091009
  Serious: Yes (Other)
  Sender: FDA-Public Use
  Company Number: None

PATIENT
  Sex: Female
  Weight: 62 kg

DRUGS (1)
  1. VALPROIC ACID [Suspect]
     Indication: EPILEPSY
     Dosage: 500 MG TB24 2 TABS PO
     Route: 048
     Dates: start: 20090601

REACTIONS (4)
  - ABDOMINAL PAIN [None]
  - CONVULSION [None]
  - HEADACHE [None]
  - VOMITING [None]
